FAERS Safety Report 8400038 (Version 2)
Quarter: 2015Q2

REPORT INFORMATION
  Report Type: Spontaneous
  Country: US (occurrence: US)
  Receive Date: 20120210
  Receipt Date: 20150429
  Transmission Date: 20150821
  Serious: Yes (Other)
  Sender: FDA-Public Use
  Company Number: US-ROCHE-794049

PATIENT
  Sex: Male
  Weight: 77.18 kg

DRUGS (1)
  1. ACCUTANE [Suspect]
     Active Substance: ISOTRETINOIN
     Indication: ACNE CYSTIC
     Route: 065
     Dates: start: 1995, end: 1996

REACTIONS (5)
  - Inflammatory bowel disease [Unknown]
  - Suicidal ideation [Unknown]
  - Depression [Unknown]
  - Irritable bowel syndrome [Unknown]
  - Suicide attempt [Unknown]

NARRATIVE: CASE EVENT DATE: 1999
